FAERS Safety Report 5466962-9 (Version None)
Quarter: 2007Q3

REPORT INFORMATION
  Report Type: 
  Country: None (occurrence: None)
  Receive Date: 20070925
  Receipt Date: 20070920
  Transmission Date: 20080115
  Serious: Yes (Disabling)
  Sender: FDA-Public Use
  Company Number: HQWYE255720SEP07

PATIENT
  Age: 46 Year
  Sex: Female

DRUGS (1)
  1. OROKEN [Suspect]
     Indication: URINARY TRACT INFECTION
     Dosage: UNKNOWN
     Route: 048
     Dates: start: 20070801, end: 20070801

REACTIONS (2)
  - CONDITION AGGRAVATED [None]
  - TENDONITIS [None]
